FAERS Safety Report 10179288 (Version 1)
Quarter: 2014Q2

REPORT INFORMATION
  Report Type: Report from Study
  Country: NO (occurrence: NO)
  Receive Date: 20140519
  Receipt Date: 20140519
  Transmission Date: 20141212
  Serious: Yes (Other)
  Sender: FDA-Public Use
  Company Number: NO-SA-2014SA062487

PATIENT
  Age: 66 Year
  Sex: Male
  Weight: 70 kg

DRUGS (7)
  1. CAMPATH [Suspect]
     Indication: CHRONIC LYMPHOCYTIC LEUKAEMIA
     Route: 065
     Dates: start: 20140407, end: 20140507
  2. LEVAXIN [Concomitant]
     Indication: HYPOTHYROIDISM
     Dosage: 125-150 MCG
  3. VALTREX [Concomitant]
     Indication: PROPHYLAXIS
     Dates: start: 20140407
  4. BACTRIM [Concomitant]
     Dates: start: 20140407
  5. METHYLPREDNISOLONE [Concomitant]
     Dosage: PART OF TREATMENT
     Route: 042
     Dates: start: 20140505, end: 20140507
  6. ANTIBIOTICS [Concomitant]
     Route: 042
     Dates: start: 20140506
  7. CEFOTAXIM [Concomitant]
     Dates: start: 20140506

REACTIONS (1)
  - Blood bilirubin increased [Unknown]
